FAERS Safety Report 24078581 (Version 1)
Quarter: 2024Q3

REPORT INFORMATION
  Report Type: Spontaneous
  Country: US (occurrence: None)
  Receive Date: 20240710
  Receipt Date: 20240710
  Transmission Date: 20241017
  Serious: Yes (Disabling)
  Sender: Public
  Company Number: None

PATIENT
  Age: 65 Year
  Sex: Female
  Weight: 52.2 kg

DRUGS (1)
  1. DUPIXENT [Suspect]
     Active Substance: DUPILUMAB
     Indication: Eczema
     Dates: start: 20231117, end: 20231222

REACTIONS (6)
  - Erythema [None]
  - Swelling face [None]
  - Palpitations [None]
  - Pruritus [None]
  - Rash [None]
  - Alopecia [None]

NARRATIVE: CASE EVENT DATE: 20231222
